FAERS Safety Report 9936084 (Version 1)
Quarter: 2014Q1

REPORT INFORMATION
  Report Type: Spontaneous
  Country: US (occurrence: US)
  Receive Date: 20140228
  Receipt Date: 20140228
  Transmission Date: 20141002
  Serious: No
  Sender: FDA-Public Use
  Company Number: US-AMGEN-USASP2013080274

PATIENT
  Age: 66 Year
  Sex: Female
  Weight: 63.49 kg

DRUGS (9)
  1. ENBREL [Suspect]
     Indication: PRODUCT USED FOR UNKNOWN INDICATION
     Dosage: 50 MG, 2 TIMES/WK
     Route: 058
  2. WARFARIN [Concomitant]
     Dosage: 5 MG, UNK
  3. FUROSEMIDE [Concomitant]
     Dosage: 40 MG, UNK
  4. AZATHIOPRINE [Concomitant]
     Dosage: 50 MG, UNK
  5. DIGOXIN [Concomitant]
     Dosage: 0.25 MG, UNK
  6. SOTALOL HCL [Concomitant]
     Dosage: 120 MG, UNK
  7. B COMPLEX                          /00212701/ [Concomitant]
     Dosage: UNK
  8. MULTIVITAMINES WITH IRON           /02170101/ [Concomitant]
     Dosage: UNK
  9. TACLONEX [Concomitant]
     Dosage: UNK

REACTIONS (1)
  - Nasopharyngitis [Unknown]
